FAERS Safety Report 5030696-5 (Version None)
Quarter: 2006Q2

REPORT INFORMATION
  Report Type: 
  Country: None (occurrence: None)
  Receive Date: 20060615
  Receipt Date: 20060607
  Transmission Date: 20061013
  Serious: Yes (Disabling, Other)
  Sender: FDA-Public Use
  Company Number: 2006064674

PATIENT
  Age: 51 Year
  Sex: Male

DRUGS (9)
  1. LIPITOR [Suspect]
     Indication: BLOOD CHOLESTEROL INCREASED
     Dosage: 40 MG, ORAL
     Route: 048
  2. NICORANDIL (NICORANDIL) [Concomitant]
  3. ISOSORBIDE (ISOSORBIDE) [Concomitant]
  4. ASPIRIN [Concomitant]
  5. NITROGLYCERIN [Concomitant]
  6. SALBUTAMOL (SALBUTAMOL) [Concomitant]
  7. SYMBICORT (BUDESONIDE, FORMOTEROL FUMARATE) [Concomitant]
  8. FUROSEMIDE [Concomitant]
  9. VERAPAMIL [Concomitant]

REACTIONS (3)
  - ALLERGY TO CHEMICALS [None]
  - DYSPNOEA [None]
  - IMPAIRED WORK ABILITY [None]
